FAERS Safety Report 11742374 (Version 1)
Quarter: 2015Q4

REPORT INFORMATION
  Report Type: Spontaneous
  Country: US (occurrence: US)
  Receive Date: 20151116
  Receipt Date: 20151116
  Transmission Date: 20160304
  Serious: Yes (Disabling)
  Sender: FDA-Public Use
  Company Number: US-KEDRION-2015-83

PATIENT
  Age: 31 Year

DRUGS (1)
  1. RHOGAM [Suspect]
     Active Substance: HUMAN RHO(D) IMMUNE GLOBULIN
     Indication: VAGINAL HAEMORRHAGE
     Dates: start: 201505, end: 201505

REACTIONS (5)
  - Medication error [None]
  - Wrong drug administered [None]
  - Exposure during pregnancy [None]
  - Cerebrovascular accident [Unknown]
  - Abortion spontaneous [Unknown]
